FAERS Safety Report 11710093 (Version 2)
Quarter: 2015Q4

REPORT INFORMATION
  Report Type: Spontaneous
  Country: US (occurrence: US)
  Receive Date: 20151104
  Receipt Date: 20151110
  Transmission Date: 20160304
  Serious: No
  Sender: FDA-Public Use
  Company Number: US-ELI_LILLY_AND_COMPANY-US201102007080

PATIENT
  Age: 77 Year
  Sex: Female

DRUGS (4)
  1. FORTEO [Suspect]
     Active Substance: TERIPARATIDE
     Indication: OSTEOPOROSIS
     Dosage: 20 UG, QD
     Route: 065
     Dates: start: 201011
  2. PREDNISONE. [Concomitant]
     Active Substance: PREDNISONE
     Route: 065
  3. FORTEO [Suspect]
     Active Substance: TERIPARATIDE
     Dosage: 20 UG, QD
     Route: 065
     Dates: end: 201105
  4. FORTEO [Suspect]
     Active Substance: TERIPARATIDE
     Dosage: 20 UG, QD
     Dates: start: 201106

REACTIONS (11)
  - Visual acuity reduced [Unknown]
  - Headache [Unknown]
  - Somnolence [Unknown]
  - Confusional state [Unknown]
  - Drug dose omission [Unknown]
  - Urticaria [Unknown]
  - Urticaria [Recovered/Resolved]
  - Eyelid oedema [Unknown]
  - Rash [Unknown]
  - Swelling face [Unknown]
  - Eye pain [Unknown]

NARRATIVE: CASE EVENT DATE: 20110523
